FAERS Safety Report 4717317-3 (Version None)
Quarter: 2005Q3

REPORT INFORMATION
  Report Type: 
  Country: None (occurrence: None)
  Receive Date: 20050719
  Receipt Date: 20050525
  Transmission Date: 20060218
  Serious: Yes (Hospitalization)
  Sender: FDA-Public Use
  Company Number: PHRM2005FR01661

PATIENT
  Age: 38 Year
  Sex: Male

DRUGS (14)
  1. AREDIA [Suspect]
     Indication: FIBROUS DYSPLASIA OF BONE
     Dosage: 60 MG PER DAY FOR THREE DAYS
     Route: 042
     Dates: start: 20050101
  2. AREDIA [Suspect]
     Dosage: 60 MG/DAY
     Route: 042
     Dates: start: 20050509
  3. ACETAMINOPHEN [Concomitant]
     Indication: PROPHYLAXIS
     Route: 065
  4. ENALAPRIL MALEATE [Concomitant]
     Dosage: 20 MG, QD
     Route: 048
  5. ALLOPURINOL [Concomitant]
     Dosage: 100 MG, QD
     Route: 048
  6. SODIUM BICARBONATE [Concomitant]
     Dosage: 2 DF, TID
     Route: 048
  7. IKOREL [Concomitant]
     Dosage: 20 MG, BID
     Route: 048
  8. STAGID [Concomitant]
     Dosage: 700 MG, BID
     Route: 048
  9. FUMAFER [Concomitant]
     Dosage: 200 MG, BID
     Route: 048
  10. KARDEGIC [Concomitant]
     Dosage: 75 MG, QD
     Route: 048
  11. DI-ANTALVIC [Concomitant]
     Dosage: 1 TO 6 CAPS/DAY PRN
     Route: 048
  12. LIPANTHYL [Concomitant]
     Dosage: 160 MG, QD
     Route: 048
  13. ASCORBIC ACID [Concomitant]
     Dosage: 1 G, QD
     Route: 048
  14. CLAMOXYL [Concomitant]
     Indication: TONSILLITIS
     Route: 048
     Dates: end: 20050509

REACTIONS (12)
  - ABDOMINAL PAIN [None]
  - C-REACTIVE PROTEIN INCREASED [None]
  - DEHYDRATION [None]
  - FAECES DISCOLOURED [None]
  - GAMMA-GLUTAMYLTRANSFERASE INCREASED [None]
  - HYPERCALCAEMIA [None]
  - HYPERNATRAEMIA [None]
  - HYPERPROTEINAEMIA [None]
  - HYPOKALAEMIA [None]
  - PULMONARY CONGESTION [None]
  - SUBILEUS [None]
  - VOMITING [None]
